FAERS Safety Report 8485849-0 (Version None)
Quarter: 2012Q3

REPORT INFORMATION
  Report Type: 
  Country: None (occurrence: None)
  Receive Date: 20120703
  Receipt Date: 20120627
  Transmission Date: 20120928
  Serious: Yes (Hospitalization)
  Sender: FDA-Public Use
  Company Number: PHHY2012TN055220

PATIENT
  Age: 66 Year
  Sex: Female

DRUGS (4)
  1. LEVOFLOXACIN [Suspect]
     Indication: RESPIRATORY TRACT INFECTION
     Dosage: 500 MG, BID
  2. ACETAMINOPHEN [Concomitant]
     Indication: PYREXIA
     Dosage: 2 G, UNK
  3. BECLOMETHASONE DIPROPIONATE [Concomitant]
     Indication: ASTHMA
  4. ALBUTEROL SULATE [Concomitant]
     Indication: ASTHMA

REACTIONS (4)
  - SKIN PLAQUE [None]
  - DRUG ERUPTION [None]
  - ERYTHEMA [None]
  - SKIN LESION [None]
